FAERS Safety Report 8027882-9 (Version None)
Quarter: 2012Q1

REPORT INFORMATION
  Report Type: 
  Country: None (occurrence: None)
  Receive Date: 20120106
  Receipt Date: 20120103
  Transmission Date: 20120608
  Serious: Yes (Other)
  Sender: FDA-Public Use
  Company Number: CA-PFIZER INC-2009287088

PATIENT
  Age: 32 Year
  Sex: Male

DRUGS (7)
  1. ATIVAN [Suspect]
     Dosage: UNK
     Dates: start: 20090928, end: 20090101
  2. CLONAZEPAM [Suspect]
     Indication: ANXIETY
     Dosage: UNK
     Dates: start: 20090928, end: 20090101
  3. XANAX [Suspect]
     Indication: ANXIETY
     Dosage: UNK
     Dates: start: 20090928
  4. XANAX [Suspect]
     Indication: INSOMNIA
  5. REMERON [Concomitant]
     Dosage: 30 MG, 1X/DAY
  6. CLOZAPINE [Suspect]
     Indication: SCHIZOPHRENIA
     Dosage: 750 MG, 1X/DAY
     Route: 048
     Dates: start: 20090114
  7. CLONAZEPAM [Suspect]
     Indication: INSOMNIA

REACTIONS (4)
  - INTENTIONAL DRUG MISUSE [None]
  - ANXIETY [None]
  - SLEEP DISORDER [None]
  - DRUG ABUSE [None]
